FAERS Safety Report 25917887 (Version 1)
Quarter: 2025Q4

REPORT INFORMATION
  Report Type: Spontaneous
  Country: JP (occurrence: JP)
  Receive Date: 20251014
  Receipt Date: 20251014
  Transmission Date: 20260118
  Serious: Yes (Other)
  Sender: ORGANON
  Company Number: JP-ORGANON-O2510JPN001019

PATIENT
  Sex: Female

DRUGS (1)
  1. BONALON [Suspect]
     Active Substance: ALENDRONATE SODIUM
     Dosage: 900 MICROGRAM PER 4 WEEKS (I.V. INFUSION)
     Dates: start: 2018, end: 202506

REACTIONS (2)
  - Hip fracture [Unknown]
  - Hip arthroplasty [Unknown]

NARRATIVE: CASE EVENT DATE: 20250101
